FAERS Safety Report 5712490-2 (Version None)
Quarter: 2008Q2

REPORT INFORMATION
  Report Type: 
  Country: None (occurrence: None)
  Receive Date: 20080422
  Receipt Date: 20080408
  Transmission Date: 20081010
  Serious: Yes (Hospitalization)
  Sender: FDA-Public Use
  Company Number: AU-AMGEN-QUU267928

PATIENT
  Sex: Female
  Weight: 60 kg

DRUGS (4)
  1. NEULASTA [Suspect]
     Indication: CHEMOTHERAPY
     Route: 058
     Dates: start: 20071204, end: 20071204
  2. DOCETAXEL [Suspect]
     Dates: start: 20071203
  3. ADRIAMYCIN PFS [Suspect]
     Dates: start: 20071203
  4. CYCLOPHOSPHAMIDE [Suspect]
     Dates: start: 20071203

REACTIONS (2)
  - DRUG INEFFECTIVE [None]
  - FEBRILE NEUTROPENIA [None]
